FAERS Safety Report 12747331 (Version 1)
Quarter: 2016Q3

REPORT INFORMATION
  Report Type: Spontaneous
  Country: US (occurrence: US)
  Receive Date: 20160915
  Receipt Date: 20160915
  Transmission Date: 20161109
  Serious: No
  Sender: FDA-Public Use
  Company Number: US-JAZZ-2016-US-009650

PATIENT
  Sex: Female

DRUGS (33)
  1. HYDROCHLOROTHIAZIDE. [Concomitant]
     Active Substance: HYDROCHLOROTHIAZIDE
  2. DALIRESP [Concomitant]
     Active Substance: ROFLUMILAST
  3. SPIRIVA [Concomitant]
     Active Substance: TIOTROPIUM BROMIDE MONOHYDRATE
  4. ESTRADIOL. [Concomitant]
     Active Substance: ESTRADIOL
  5. XYREM [Suspect]
     Active Substance: SODIUM OXYBATE
     Indication: NARCOLEPSY
     Dosage: 1.5 G, BID
     Route: 048
     Dates: start: 201509, end: 201510
  6. TOPAMAX [Concomitant]
     Active Substance: TOPIRAMATE
  7. ALBUTEROL. [Concomitant]
     Active Substance: ALBUTEROL
  8. METOPROLOL SUCCINATE ER [Concomitant]
     Active Substance: METOPROLOL SUCCINATE
  9. XYREM [Suspect]
     Active Substance: SODIUM OXYBATE
     Dosage: 3 G, BID
     Route: 048
     Dates: start: 201510
  10. COPAXONE [Concomitant]
     Active Substance: GLATIRAMER ACETATE
  11. IPRATROPIUM BROMIDE. [Concomitant]
     Active Substance: IPRATROPIUM BROMIDE
  12. DONEPEZIL HCL [Concomitant]
     Active Substance: DONEPEZIL HYDROCHLORIDE
  13. ASPIRIN. [Concomitant]
     Active Substance: ASPIRIN
  14. ATORVASTATIN [Concomitant]
     Active Substance: ATORVASTATIN
  15. EXELON [Concomitant]
     Active Substance: RIVASTIGMINE TARTRATE
  16. GABAPENTIN. [Concomitant]
     Active Substance: GABAPENTIN
  17. CLONAZEPAM. [Concomitant]
     Active Substance: CLONAZEPAM
  18. SYMBICORT [Concomitant]
     Active Substance: BUDESONIDE\FORMOTEROL FUMARATE DIHYDRATE
  19. ETODOLAC ER [Concomitant]
     Active Substance: ETODOLAC
  20. PROAIR HFA [Concomitant]
     Active Substance: ALBUTEROL SULFATE
  21. OMEPRAZOLE DR [Concomitant]
     Active Substance: OMEPRAZOLE
  22. TRIAMTERENE AND HYDROCHLOROTHIAZIDE [Concomitant]
     Active Substance: HYDROCHLOROTHIAZIDE\TRIAMTERENE
  23. TESSALON [Concomitant]
     Active Substance: BENZONATATE
  24. DIAZEPAM. [Concomitant]
     Active Substance: DIAZEPAM
  25. NUVIGIL [Concomitant]
     Active Substance: ARMODAFINIL
  26. PANTOPRAZOLE SODIUM DR [Concomitant]
     Active Substance: PANTOPRAZOLE SODIUM
  27. TRAMADOL HCL [Concomitant]
     Active Substance: TRAMADOL HYDROCHLORIDE
  28. FLURBIPROFEN. [Concomitant]
     Active Substance: FLURBIPROFEN
  29. BACLOFEN. [Concomitant]
     Active Substance: BACLOFEN
  30. LYRICA [Concomitant]
     Active Substance: PREGABALIN
  31. AMRIX ER [Concomitant]
  32. MAXALT-MLT [Concomitant]
     Active Substance: RIZATRIPTAN BENZOATE
  33. MYRBETRIQ ER [Concomitant]

REACTIONS (1)
  - Abnormal dreams [Unknown]
